FAERS Safety Report 13636149 (Version 1)
Quarter: 2017Q2

REPORT INFORMATION
  Report Type: Spontaneous
  Country: US (occurrence: US)
  Receive Date: 20170531
  Receipt Date: 20170531
  Transmission Date: 20170830
  Serious: No
  Sender: FDA-Public Use
  Company Number: US-ASTELLAS-1786999

PATIENT
  Sex: Male

DRUGS (6)
  1. BECLOMETHASONE DIPROPIONATE [Concomitant]
     Active Substance: BECLOMETHASONE DIPROPIONATE
  2. CAPTOPRIL. [Concomitant]
     Active Substance: CAPTOPRIL
  3. ASPIRIN EC [Concomitant]
     Active Substance: ASPIRIN
  4. TARCEVA [Suspect]
     Active Substance: ERLOTINIB HYDROCHLORIDE
     Indication: LUNG NEOPLASM MALIGNANT
     Route: 048
     Dates: start: 20160412
  5. ACARBOSE. [Concomitant]
     Active Substance: ACARBOSE
  6. ACETAMINOPHEN. [Concomitant]
     Active Substance: ACETAMINOPHEN

REACTIONS (3)
  - Erythema [Unknown]
  - Rash [Unknown]
  - Dry skin [Unknown]
